FAERS Safety Report 5678597-3 (Version None)
Quarter: 2008Q1

REPORT INFORMATION
  Report Type: 
  Country: None (occurrence: None)
  Receive Date: 20080325
  Receipt Date: 20080314
  Transmission Date: 20080703
  Serious: Yes (Death)
  Sender: FDA-Public Use
  Company Number: US-ROCHE-553505

PATIENT
  Age: 50 Year
  Sex: Female
  Weight: 43.5 kg

DRUGS (2)
  1. CAPECITABINE [Suspect]
     Indication: BREAST CANCER
     Route: 065
  2. TYKERB [Concomitant]

REACTIONS (1)
  - DEATH [None]
